FAERS Safety Report 9519209 (Version 1)
Quarter: 2013Q3

REPORT INFORMATION
  Report Type: Spontaneous
  Country: US (occurrence: None)
  Receive Date: 20130911
  Receipt Date: 20130911
  Transmission Date: 20140515
  Serious: Yes (Disabling)
  Sender: FDA-Public Use
  Company Number: None

PATIENT
  Age: 51 Year
  Sex: Male
  Weight: 95.26 kg

DRUGS (1)
  1. LIPTRUZET [Suspect]
     Indication: BLOOD CHOLESTEROL INCREASED
     Route: 048
     Dates: start: 20130628, end: 20130706

REACTIONS (6)
  - Gait disturbance [None]
  - Swelling [None]
  - Fluid retention [None]
  - Pyrexia [None]
  - Diarrhoea [None]
  - Vomiting [None]
